FAERS Safety Report 5067797-1 (Version None)
Quarter: 2006Q3

REPORT INFORMATION
  Report Type: 
  Country: None (occurrence: None)
  Receive Date: 20060802
  Receipt Date: 20060725
  Transmission Date: 20061208
  Serious: Yes (Hospitalization)
  Sender: FDA-Public Use
  Company Number: FR-GLAXOSMITHKLINE-B0432123A

PATIENT
  Age: 29 Year
  Sex: Male

DRUGS (3)
  1. AUGMENTIN '125' [Suspect]
     Indication: PRODUCTIVE COUGH
     Dosage: 1G PER DAY
     Route: 048
     Dates: start: 20060327, end: 20060328
  2. DEPAKENE [Concomitant]
     Indication: EPILEPSY
     Dosage: 1TAB TWICE PER DAY
     Route: 048
  3. DEPAKENE [Concomitant]
     Indication: EPILEPSY
     Dosage: 1TAB TWICE PER DAY
     Route: 048

REACTIONS (6)
  - ACUTE GENERALISED EXANTHEMATOUS PUSTULOSIS [None]
  - INTERTRIGO [None]
  - OEDEMA [None]
  - RASH MACULO-PAPULAR [None]
  - RASH PUSTULAR [None]
  - SKIN EXFOLIATION [None]
